FAERS Safety Report 9496919 (Version 3)
Quarter: 2014Q3

REPORT INFORMATION
  Report Type: Spontaneous
  Country: US (occurrence: US)
  Receive Date: 20130904
  Receipt Date: 20140717
  Transmission Date: 20150326
  Serious: Yes (Hospitalization)
  Sender: FDA-Public Use
  Company Number: US-BAYER-2013-105319

PATIENT
  Age: 23 Year
  Sex: Female
  Weight: 72.56 kg

DRUGS (1)
  1. MIRENA [Suspect]
     Active Substance: LEVONORGESTREL
     Indication: CONTRACEPTION
     Dosage: 20 MCG/DL, CONT
     Route: 015
     Dates: start: 20050421, end: 20050927

REACTIONS (12)
  - Abdominal pain lower [None]
  - Uterine perforation [None]
  - Abasia [None]
  - Infection [None]
  - Menorrhagia [None]
  - Peritoneal adhesions [None]
  - Device dislocation [None]
  - Medical device pain [None]
  - Emotional distress [None]
  - Vulvovaginal pain [None]
  - Pelvic pain [None]
  - Injury [None]

NARRATIVE: CASE EVENT DATE: 2005
